FAERS Safety Report 8337384-8 (Version None)
Quarter: 2012Q2

REPORT INFORMATION
  Report Type: 
  Country: None (occurrence: None)
  Receive Date: 20120504
  Receipt Date: 20110726
  Transmission Date: 20120825
  Serious: No
  Sender: FDA-Public Use
  Company Number: US-TEVA-2011003935

PATIENT
  Sex: Female
  Weight: 81.72 kg

DRUGS (9)
  1. AMLODIPINE [Concomitant]
  2. MELOXICAM [Concomitant]
  3. ASPIRIN [Concomitant]
  4. SYNTHROID [Concomitant]
     Dates: start: 19780101
  5. CYMBALTA [Concomitant]
  6. DIOVAN HCT [Concomitant]
     Dates: start: 20110714
  7. NUVIGIL [Suspect]
     Route: 048
  8. NUVIGIL [Suspect]
     Indication: FIBROMYALGIA
     Dosage: 75 MILLIGRAM;
     Route: 048
     Dates: start: 20110629, end: 20110713
  9. NUVIGIL [Suspect]
     Dosage: 50 MILLIGRAM;
     Route: 048
     Dates: start: 20110714

REACTIONS (4)
  - DECREASED APPETITE [None]
  - DRUG INEFFECTIVE FOR UNAPPROVED INDICATION [None]
  - HEADACHE [None]
  - DRY MOUTH [None]
